FAERS Safety Report 20632027 (Version 1)
Quarter: 2022Q1

REPORT INFORMATION
  Report Type: Spontaneous
  Country: CA (occurrence: CA)
  Receive Date: 20220324
  Receipt Date: 20220324
  Transmission Date: 20220423
  Serious: Yes (Other)
  Sender: FDA-Public Use
  Company Number: CA-MYLANLABS-2022M1021509

PATIENT
  Sex: Female
  Weight: 52 kg

DRUGS (1)
  1. OGIVRI [Suspect]
     Active Substance: TRASTUZUMAB-DKST
     Indication: Breast cancer metastatic
     Dosage: 310 MILLIGRAM, 3XW
     Dates: start: 20220228

REACTIONS (1)
  - Blood pressure diastolic decreased [Unknown]
